FAERS Safety Report 11247612 (Version 1)
Quarter: 2015Q3

REPORT INFORMATION
  Report Type: Spontaneous
  Country: US (occurrence: None)
  Receive Date: 20150707
  Receipt Date: 20150707
  Transmission Date: 20151125
  Serious: Yes (Life-Threatening, Hospitalization)
  Sender: FDA-Public Use
  Company Number: None

PATIENT
  Age: 79 Year
  Sex: Female
  Weight: 68.49 kg

DRUGS (11)
  1. NOVOLIN N INSULIN [Concomitant]
  2. NOVOLIN R INSULIN [Concomitant]
  3. CELEXA [Concomitant]
     Active Substance: CITALOPRAM HYDROBROMIDE
  4. SPIRIVA [Concomitant]
     Active Substance: TIOTROPIUM BROMIDE MONOHYDRATE
  5. NORVASC [Concomitant]
     Active Substance: AMLODIPINE BESYLATE
  6. LIDOCAINE 1% WITH EPINEPHRINE [Concomitant]
     Active Substance: EPINEPHRINE\LIDOCAINE
  7. LEVOTHYROXINE. [Concomitant]
     Active Substance: LEVOTHYROXINE
  8. ASA [Concomitant]
     Active Substance: ASPIRIN
  9. LISINOPRIL. [Concomitant]
     Active Substance: LISINOPRIL
  10. RECLAST [Suspect]
     Active Substance: ZOLEDRONIC ACID
     Indication: OSTEOPOROSIS
     Dosage: LOT #BS423, EXPIRATION DATE 04/30/2016
  11. ATENOLOL. [Concomitant]
     Active Substance: ATENOLOL

REACTIONS (4)
  - Confusional state [None]
  - Hyperhidrosis [None]
  - Agitation [None]
  - Blood glucose decreased [None]

NARRATIVE: CASE EVENT DATE: 20150625
